FAERS Safety Report 16132966 (Version 5)
Quarter: 2021Q2

REPORT INFORMATION
  Report Type: Spontaneous
  Country: US (occurrence: US)
  Receive Date: 20190329
  Receipt Date: 20210622
  Transmission Date: 20210716
  Serious: No
  Sender: FDA-Public Use
  Company Number: US-PFIZER INC-2019129603

PATIENT
  Age: 66 Year
  Sex: Female

DRUGS (1)
  1. XELJANZ XR [Suspect]
     Active Substance: TOFACITINIB CITRATE
     Indication: RHEUMATOID ARTHRITIS
     Dosage: 11 MG, DAILY
     Route: 048
     Dates: start: 201902

REACTIONS (14)
  - Abdominal pain upper [Not Recovered/Not Resolved]
  - Malaise [Not Recovered/Not Resolved]
  - Nausea [Unknown]
  - Rhinorrhoea [Not Recovered/Not Resolved]
  - Asthenia [Not Recovered/Not Resolved]
  - Diarrhoea [Not Recovered/Not Resolved]
  - Myalgia [Unknown]
  - Abdominal discomfort [Not Recovered/Not Resolved]
  - Stress [Not Recovered/Not Resolved]
  - Gastroenteritis viral [Unknown]
  - Bone pain [Unknown]
  - Vertigo [Not Recovered/Not Resolved]
  - Product dose omission issue [Unknown]
  - Condition aggravated [Unknown]
